FAERS Safety Report 15532443 (Version 1)
Quarter: 2018Q4

REPORT INFORMATION
  Report Type: Spontaneous
  Country: HU (occurrence: HU)
  Receive Date: 20181019
  Receipt Date: 20181019
  Transmission Date: 20190205
  Serious: Yes (Hospitalization)
  Sender: FDA-Public Use
  Company Number: PHHY2018HU127415

PATIENT
  Age: 79 Year
  Sex: Male

DRUGS (1)
  1. PANTOPRAZOL [Suspect]
     Active Substance: PANTOPRAZOLE SODIUM
     Indication: PRODUCT USED FOR UNKNOWN INDICATION
     Route: 065

REACTIONS (12)
  - Somnolence [Unknown]
  - Abdominal distension [Unknown]
  - Cystitis [Unknown]
  - Pyrexia [Unknown]
  - Dysgeusia [Unknown]
  - Vomiting [Unknown]
  - Decreased appetite [Unknown]
  - Asthenia [Unknown]
  - Muscle spasms [Recovered/Resolved]
  - Fall [Recovered/Resolved]
  - Normocytic anaemia [Unknown]
  - Pallor [Unknown]

NARRATIVE: CASE EVENT DATE: 201808
